FAERS Safety Report 21937127 (Version 1)
Quarter: 2023Q1

REPORT INFORMATION
  Report Type: Report from Study
  Country: JP (occurrence: JP)
  Receive Date: 20230201
  Receipt Date: 20230201
  Transmission Date: 20230418
  Serious: No
  Sender: FDA-Public Use
  Company Number: JP-EPIZYME, INC-2022JPEPIZYME0742

PATIENT

DRUGS (1)
  1. TAZVERIK [Suspect]
     Active Substance: TAZEMETOSTAT HYDROBROMIDE
     Indication: Follicular lymphoma
     Dosage: 1600 MG, QD
     Route: 048
     Dates: start: 20220921, end: 202210

REACTIONS (3)
  - Taste disorder [Not Recovered/Not Resolved]
  - Cytopenia [Not Recovered/Not Resolved]
  - Cytomegalovirus infection [Unknown]

NARRATIVE: CASE EVENT DATE: 20221001
